FAERS Safety Report 15890539 (Version 1)
Quarter: 2019Q1

REPORT INFORMATION
  Report Type: Spontaneous
  Country: US (occurrence: US)
  Receive Date: 20190130
  Receipt Date: 20190130
  Transmission Date: 20190417
  Serious: Yes (Hospitalization, Other)
  Sender: FDA-Public Use
  Company Number: US-ABBVIE-19S-163-2638251-00

PATIENT
  Sex: Male

DRUGS (7)
  1. DEPAKOTE [Suspect]
     Active Substance: DIVALPROEX SODIUM
     Indication: PRODUCT USED FOR UNKNOWN INDICATION
     Route: 065
  2. ABILIFY [Suspect]
     Active Substance: ARIPIPRAZOLE
     Indication: SCHIZOAFFECTIVE DISORDER
     Route: 048
     Dates: start: 201811
  3. LITHIUM. [Concomitant]
     Active Substance: LITHIUM
     Indication: PRODUCT USED FOR UNKNOWN INDICATION
     Route: 065
  4. ZYPREXA [Suspect]
     Active Substance: OLANZAPINE
     Indication: BIPOLAR DISORDER
     Dosage: 20 MG QD
     Route: 048
     Dates: start: 2014, end: 2017
  5. ABILIFY [Suspect]
     Active Substance: ARIPIPRAZOLE
     Indication: BIPOLAR DISORDER
     Dosage: 30 MG QD
     Route: 048
     Dates: start: 2004
  6. ABILIFY MAINTENA [Suspect]
     Active Substance: ARIPIPRAZOLE
     Indication: PRODUCT USED FOR UNKNOWN INDICATION
     Route: 065
  7. ABILIFY [Suspect]
     Active Substance: ARIPIPRAZOLE
     Route: 048

REACTIONS (14)
  - Diabetes mellitus [Recovered/Resolved]
  - Nervousness [Unknown]
  - Psychiatric decompensation [Unknown]
  - Weight increased [Unknown]
  - Schizoaffective disorder [Unknown]
  - Insomnia [Unknown]
  - Memory impairment [Unknown]
  - Schizophrenia [Not Recovered/Not Resolved]
  - Substance abuse [Unknown]
  - Product use in unapproved indication [Unknown]
  - Paranoia [Unknown]
  - Drug hypersensitivity [Unknown]
  - Schizoaffective disorder [Unknown]
  - Borderline personality disorder [Unknown]

NARRATIVE: CASE EVENT DATE: 2011
